FAERS Safety Report 5143787-5 (Version None)
Quarter: 2006Q4

REPORT INFORMATION
  Report Type: 
  Country: None (occurrence: None)
  Receive Date: 20061101
  Receipt Date: 20061101
  Transmission Date: 20070319
  Serious: No
  Sender: FDA-Public Use
  Company Number: None

PATIENT
  Age: 61 Year
  Sex: Female

DRUGS (1)
  1. AVINZA [Suspect]
     Indication: PAIN MANAGEMENT
     Dosage: 30MG  DAY  P.O.
     Route: 048
     Dates: start: 20051201, end: 20060713

REACTIONS (3)
  - HYPERREFLEXIA [None]
  - HYPOAESTHESIA [None]
  - MUSCLE SPASTICITY [None]
